FAERS Safety Report 7646962 (Version 3)
Quarter: 2013Q1

REPORT INFORMATION
  Report Type: Spontaneous
  Country: US (occurrence: US)
  Receive Date: 20101029
  Receipt Date: 20130124
  Transmission Date: 20140127
  Serious: Yes (Death, Hospitalization)
  Sender: FDA-Public Use
  Company Number: US-ACTELION-A-US2010-40777

PATIENT
  Age: 74 Year
  Sex: Male

DRUGS (9)
  1. TRACLEER [Suspect]
     Indication: PULMONARY ARTERIAL HYPERTENSION
     Dosage: UNK
     Route: 048
     Dates: start: 20091116
  2. VENTAVIS [Suspect]
     Indication: PULMONARY ARTERIAL HYPERTENSION
     Dosage: 5 ?G, 6 X/DAY
     Route: 055
     Dates: start: 20090909, end: 20100925
  3. DIGOXIN [Concomitant]
  4. SIMVASTATIN [Concomitant]
  5. LASIX [Concomitant]
  6. CARDIZEM [Concomitant]
  7. AVODART [Concomitant]
  8. ECOTRIN [Concomitant]
  9. KLOR-CON [Concomitant]

REACTIONS (12)
  - Myocardial infarction [Fatal]
  - Cardiac arrest [Fatal]
  - Ventricular tachycardia [Fatal]
  - Ventricular fibrillation [Fatal]
  - Pulseless electrical activity [Fatal]
  - Unresponsive to stimuli [Fatal]
  - Renal failure acute [Fatal]
  - Multi-organ failure [Fatal]
  - Aspartate aminotransferase increased [Fatal]
  - Alanine aminotransferase increased [Fatal]
  - Blood alkaline phosphatase increased [Fatal]
  - Troponin increased [Fatal]
